FAERS Safety Report 18166180 (Version 1)
Quarter: 2020Q3

REPORT INFORMATION
  Report Type: Report from Study
  Country: None (occurrence: US)
  Receive Date: 20200819
  Receipt Date: 20200819
  Transmission Date: 20201103
  Serious: Yes (Other)
  Sender: FDA-Public Use
  Company Number: US-ABBVIE-20K-163-3525107-00

PATIENT
  Sex: Female

DRUGS (1)
  1. HUMIRA [Suspect]
     Active Substance: ADALIMUMAB
     Indication: CROHN^S DISEASE
     Route: 058

REACTIONS (6)
  - Constipation [Recovering/Resolving]
  - Arthralgia [Recovering/Resolving]
  - Systemic lupus erythematosus [Recovering/Resolving]
  - Exposure to SARS-CoV-2 [Recovering/Resolving]
  - Illness [Unknown]
  - Condition aggravated [Recovering/Resolving]
